FAERS Safety Report 19906636 (Version 10)
Quarter: 2023Q4

REPORT INFORMATION
  Report Type: Report from Study
  Country: CA (occurrence: CA)
  Receive Date: 20210930
  Receipt Date: 20231114
  Transmission Date: 20240109
  Serious: Yes (Other)
  Sender: FDA-Public Use
  Company Number: CA-TAKEDA-2021TUS057973

PATIENT
  Age: 54 Year
  Sex: Male

DRUGS (8)
  1. VEDOLIZUMAB [Suspect]
     Active Substance: VEDOLIZUMAB
     Indication: Crohn^s disease
     Dosage: 300 MILLIGRAM
     Route: 042
     Dates: start: 20210607
  2. VEDOLIZUMAB [Suspect]
     Active Substance: VEDOLIZUMAB
     Dosage: 300 MILLIGRAM
     Route: 042
  3. VEDOLIZUMAB [Suspect]
     Active Substance: VEDOLIZUMAB
     Dosage: 300 MILLIGRAM
     Route: 042
  4. VEDOLIZUMAB [Suspect]
     Active Substance: VEDOLIZUMAB
     Dosage: 300 MILLIGRAM, Q4WEEKS
     Route: 042
     Dates: start: 20220909
  5. VEDOLIZUMAB [Suspect]
     Active Substance: VEDOLIZUMAB
     Dosage: 300 MILLIGRAM, Q4WEEKS
     Route: 042
     Dates: end: 20231011
  6. MESALAMINE [Concomitant]
     Active Substance: MESALAMINE
     Dosage: 1.2 GRAM
     Dates: start: 20170101
  7. VITAMIN C [Concomitant]
     Active Substance: ASCORBIC ACID
     Dosage: UNK
  8. IRON [Concomitant]
     Active Substance: IRON
     Dosage: UNK
     Route: 042
     Dates: start: 202105

REACTIONS (6)
  - Crohn^s disease [Unknown]
  - Gastric infection [Unknown]
  - Haematochezia [Unknown]
  - Diarrhoea [Unknown]
  - Off label use [Unknown]
  - Faeces soft [Unknown]

NARRATIVE: CASE EVENT DATE: 20220909
